FAERS Safety Report 10611755 (Version 2)
Quarter: 2014Q4

REPORT INFORMATION
  Report Type: Spontaneous
  Country: JP (occurrence: JP)
  Receive Date: 20141126
  Receipt Date: 20141210
  Transmission Date: 20150529
  Serious: Yes (Death)
  Sender: FDA-Public Use
  Company Number: JP-NOVOPROD-429942

PATIENT
  Age: 65 Year
  Sex: Female
  Weight: 35.7 kg

DRUGS (5)
  1. NOVORAPID [Suspect]
     Active Substance: INSULIN ASPART
     Dosage: 10 UNITS
     Route: 058
     Dates: start: 20131125, end: 20131125
  2. GLUCOSE [Concomitant]
     Active Substance: DEXTROSE
     Dosage: 20 ML
     Route: 065
  3. NOVORAPID [Suspect]
     Active Substance: INSULIN ASPART
     Dosage: 10 UNITS
     Route: 058
     Dates: start: 20131125, end: 20131125
  4. NOVORAPID [Suspect]
     Active Substance: INSULIN ASPART
     Indication: OFF LABEL USE
     Dosage: 20 UNITS
     Route: 058
     Dates: start: 20131125, end: 20131125
  5. GLUCOSE [Concomitant]
     Active Substance: DEXTROSE
     Indication: OFF LABEL USE
     Dosage: 200 ML
     Route: 042
     Dates: start: 20131125, end: 20131125

REACTIONS (1)
  - Hypoglycaemic encephalopathy [Fatal]

NARRATIVE: CASE EVENT DATE: 20131126
